FAERS Safety Report 6754438-8 (Version None)
Quarter: 2010Q2

REPORT INFORMATION
  Report Type: 
  Country: None (occurrence: None)
  Receive Date: 20100603
  Receipt Date: 20100521
  Transmission Date: 20101027
  Serious: Yes (Other)
  Sender: FDA-Public Use
  Company Number: PHHY2010MX33026

PATIENT
  Age: 70 Year
  Sex: Female

DRUGS (3)
  1. DIOVAN HCT [Suspect]
     Indication: HYPERTENSION
     Dosage: 1 TABLET (160/UNKNOWN MG) PER DAY
     Route: 048
  2. ASPIRIN [Concomitant]
     Indication: HYPERTENSION
  3. VYTORIN [Concomitant]
     Indication: DYSLIPIDAEMIA

REACTIONS (1)
  - FEELING ABNORMAL [None]
